FAERS Safety Report 5599844-2 (Version None)
Quarter: 2008Q1

REPORT INFORMATION
  Report Type: 
  Country: None (occurrence: None)
  Receive Date: 20080123
  Receipt Date: 20080114
  Transmission Date: 20080703
  Serious: Yes (Other)
  Sender: FDA-Public Use
  Company Number: US-ROCHE-540976

PATIENT
  Sex: Female

DRUGS (2)
  1. ACCUTANE [Suspect]
     Indication: DRUG USE FOR UNKNOWN INDICATION
     Dosage: COURSE 2.
     Route: 065
     Dates: start: 20070101, end: 20070801
  2. ACCUTANE [Suspect]
     Dosage: COURSE 1.
     Route: 065
     Dates: start: 20010101, end: 20010101

REACTIONS (2)
  - NO ADVERSE EVENT [None]
  - PREGNANCY [None]
